FAERS Safety Report 5355180-0 (Version None)
Quarter: 2007Q2

REPORT INFORMATION
  Report Type: 
  Country: None (occurrence: None)
  Receive Date: 20070611
  Receipt Date: 20070528
  Transmission Date: 20071010
  Serious: Yes (Death, Other)
  Sender: FDA-Public Use
  Company Number: URSO-2007-130

PATIENT
  Age: 62 Year
  Sex: Male

DRUGS (1)
  1. URSO 250 [Suspect]
     Indication: BILIARY CIRRHOSIS PRIMARY
     Dosage: 600 MG ORAL
     Route: 048
     Dates: start: 20030811, end: 20060522

REACTIONS (5)
  - ACUTE LYMPHOCYTIC LEUKAEMIA [None]
  - ALKALOSIS [None]
  - HYPERCALCAEMIA [None]
  - HYPOKALAEMIA [None]
  - MALAISE [None]
